FAERS Safety Report 25956704 (Version 1)
Quarter: 2025Q4

REPORT INFORMATION
  Report Type: Spontaneous
  Country: MY (occurrence: MY)
  Receive Date: 20251024
  Receipt Date: 20251024
  Transmission Date: 20260118
  Serious: Yes (Other)
  Sender: NOVARTIS
  Company Number: MY-002147023-NVSC2025MY159200

PATIENT
  Age: 36 Year
  Sex: Female

DRUGS (17)
  1. CYCLOSPORINE [Suspect]
     Active Substance: CYCLOSPORINE
     Indication: Prophylaxis against graft versus host disease
     Dosage: UNK
     Route: 065
  2. CYCLOSPORINE [Suspect]
     Active Substance: CYCLOSPORINE
     Dosage: 200-300 NG/ML
     Route: 048
  3. METHOTREXATE [Suspect]
     Active Substance: METHOTREXATE
     Indication: Prophylaxis against graft versus host disease
     Dosage: UNK
     Route: 065
  4. CYCLOPHOSPHAMIDE [Concomitant]
     Active Substance: CYCLOPHOSPHAMIDE
     Indication: Product used for unknown indication
     Dosage: UNK
     Route: 065
  5. RUXOLITINIB [Concomitant]
     Active Substance: RUXOLITINIB
     Indication: Product used for unknown indication
     Dosage: 10 MG, BID
     Route: 065
  6. FLUTICASONE [Concomitant]
     Active Substance: FLUTICASONE
     Indication: Product used for unknown indication
     Dosage: UNK
     Route: 065
  7. AZITHROMYCIN [Concomitant]
     Active Substance: AZITHROMYCIN
     Indication: Product used for unknown indication
     Dosage: UNK
     Route: 065
  8. MONTELUKAST [Concomitant]
     Active Substance: MONTELUKAST
     Indication: Product used for unknown indication
     Dosage: UNK
     Route: 065
  9. POSACONAZOLE [Concomitant]
     Active Substance: POSACONAZOLE
     Indication: Antibiotic prophylaxis
     Dosage: UNK
     Route: 065
  10. BACTRIM [Concomitant]
     Active Substance: SULFAMETHOXAZOLE\TRIMETHOPRIM
     Indication: Antibiotic prophylaxis
     Dosage: UNK
     Route: 065
  11. ACYCLOVIR [Concomitant]
     Active Substance: ACYCLOVIR
     Indication: Antibiotic prophylaxis
     Dosage: UNK
     Route: 065
  12. METHYLPREDNISOLONE [Concomitant]
     Active Substance: METHYLPREDNISOLONE
     Indication: Product used for unknown indication
     Dosage: 1 MG/KG, QD
     Route: 065
  13. CYCLOSPORINE [Concomitant]
     Active Substance: CYCLOSPORINE
     Indication: Product used for unknown indication
     Dosage: 50 MG, BID
     Route: 065
  14. MYCOPHENOLATE MOFETIL [Concomitant]
     Active Substance: MYCOPHENOLATE MOFETIL
     Indication: Product used for unknown indication
     Dosage: 750 MG, BID
     Route: 065
  15. MYCOPHENOLATE MOFETIL [Concomitant]
     Active Substance: MYCOPHENOLATE MOFETIL
     Dosage: 500 MG, BID
     Route: 065
  16. PREDNISOLONE [Concomitant]
     Active Substance: PREDNISOLONE
     Indication: Product used for unknown indication
     Dosage: 10 MG, QD
     Route: 065
  17. PREDNISOLONE [Concomitant]
     Active Substance: PREDNISOLONE
     Dosage: 0.75 MG/KG, QD
     Route: 048

REACTIONS (36)
  - Septic shock [Unknown]
  - Mucosal inflammation [Unknown]
  - Viral haemorrhagic cystitis [Unknown]
  - Chronic graft versus host disease [Unknown]
  - Acute graft versus host disease in intestine [Unknown]
  - Organising pneumonia [Unknown]
  - Hypoxia [Not Recovered/Not Resolved]
  - Pneumonia [Unknown]
  - Productive cough [Unknown]
  - Dry eye [Not Recovered/Not Resolved]
  - Dry mouth [Unknown]
  - Vulvovaginal rash [Unknown]
  - C-reactive protein increased [Unknown]
  - Forced vital capacity abnormal [Recovering/Resolving]
  - Forced expiratory volume abnormal [Recovering/Resolving]
  - FEV1/FVC ratio abnormal [Recovering/Resolving]
  - Peak expiratory flow rate abnormal [Recovering/Resolving]
  - Pulmonary function test abnormal [Recovering/Resolving]
  - Exercise tolerance decreased [Unknown]
  - Vulvovaginal pain [Not Recovered/Not Resolved]
  - Oxygen saturation decreased [Unknown]
  - Tachypnoea [Unknown]
  - Rhonchi [Unknown]
  - Rales [Unknown]
  - Conjunctival hyperaemia [Unknown]
  - Oral mucosal erythema [Unknown]
  - Lichenification [Unknown]
  - Hypophagia [Unknown]
  - Skin lesion [Unknown]
  - Vulvovaginal erythema [Unknown]
  - Vaginal ulceration [Unknown]
  - Oral pain [Unknown]
  - Blood alkaline phosphatase increased [Unknown]
  - Alanine aminotransferase increased [Unknown]
  - Spinal osteoarthritis [Unknown]
  - Osteopenia [Unknown]

NARRATIVE: CASE EVENT DATE: 20230123
